FAERS Safety Report 7536795-8 (Version None)
Quarter: 2011Q2

REPORT INFORMATION
  Report Type: 
  Country: None (occurrence: None)
  Receive Date: 20110603
  Receipt Date: 20110519
  Transmission Date: 20111010
  Serious: Yes (Hospitalization, Other)
  Sender: FDA-Public Use
  Company Number: AUR-APL-2010-02138

PATIENT
  Age: 70 Year
  Sex: Male
  Weight: 75 kg

DRUGS (11)
  1. ACETYL SALICYLIC ACID COMPOUND TAB [Concomitant]
  2. EFFEXOR [Concomitant]
  3. LISINOPRIL [Suspect]
     Dosage: ORAL
     Route: 048
     Dates: start: 20080921, end: 20090626
  4. METOPROLOL TARTRATE [Suspect]
     Dates: start: 20081004, end: 20090626
  5. ISOSORBIDE MONONITRATE [Concomitant]
  6. METFORMIN HCL [Concomitant]
  7. SPIRIVA [Concomitant]
  8. VALSARTAN [Concomitant]
  9. EPLERENONE [Suspect]
     Indication: CARDIAC FAILURE
     Dosage: ORAL
     Route: 048
     Dates: start: 20081006, end: 20090625
  10. THYRAX [Concomitant]
  11. FUROSEMIDE [Suspect]
     Dosage: 80MG, BID, ORAL
     Route: 048
     Dates: start: 20080201, end: 20090625

REACTIONS (8)
  - CARDIAC FAILURE [None]
  - MALAISE [None]
  - RENAL FAILURE [None]
  - CONDITION AGGRAVATED [None]
  - TOXICITY TO VARIOUS AGENTS [None]
  - DEHYDRATION [None]
  - DRUG INTERACTION [None]
  - RENAL IMPAIRMENT [None]
